FAERS Safety Report 23242148 (Version 3)
Quarter: 2024Q1

REPORT INFORMATION
  Report Type: Report from Study
  Country: CA (occurrence: CA)
  Receive Date: 20231129
  Receipt Date: 20240105
  Transmission Date: 20240410
  Serious: Yes (Other)
  Sender: FDA-Public Use
  Company Number: CA-MYLANLABS-2023M1124832

PATIENT

DRUGS (2)
  1. HULIO [Suspect]
     Active Substance: ADALIMUMAB-FKJP
     Indication: Behcet^s syndrome
     Dosage: BIWEEKLY
     Route: 058
     Dates: start: 20220711
  2. HULIO [Suspect]
     Active Substance: ADALIMUMAB-FKJP
     Dosage: 40 MILLIGRAM, BIWEEKLY
     Route: 058
     Dates: start: 20231002

REACTIONS (7)
  - Uveitis [Unknown]
  - Mouth ulceration [Unknown]
  - Genital ulceration [Unknown]
  - Arthritis [Unknown]
  - Off label use [Unknown]
  - Erythema [Unknown]
  - Pain in extremity [Unknown]
